FAERS Safety Report 20140119 (Version 1)
Quarter: 2021Q4

REPORT INFORMATION
  Report Type: Spontaneous
  Country: US (occurrence: US)
  Receive Date: 20211202
  Receipt Date: 20211202
  Transmission Date: 20220304
  Serious: Yes (Hospitalization)
  Sender: FDA-Public Use
  Company Number: US-MYLANLABS-2021M1089162

PATIENT
  Age: 76 Year
  Sex: Male

DRUGS (3)
  1. AMIODARONE [Suspect]
     Active Substance: AMIODARONE
     Indication: Atrial fibrillation
     Dosage: UNK
     Route: 065
  2. APIXABAN [Concomitant]
     Active Substance: APIXABAN
     Indication: Atrial fibrillation
     Dosage: UNK
     Route: 065
  3. TENOFOVIR [Concomitant]
     Active Substance: TENOFOVIR
     Indication: Hepatic cirrhosis
     Dosage: UNK
     Route: 065

REACTIONS (2)
  - BRASH syndrome [Recovered/Resolved]
  - Liver injury [Recovering/Resolving]
